FAERS Safety Report 6846955-7 (Version None)
Quarter: 2010Q3

REPORT INFORMATION
  Report Type: 
  Country: None (occurrence: None)
  Receive Date: 20100713
  Receipt Date: 20100708
  Transmission Date: 20110219
  Serious: Yes (Hospitalization)
  Sender: FDA-Public Use
  Company Number: 2010SP037740

PATIENT
  Age: 64 Year
  Sex: Male

DRUGS (6)
  1. TEMODAL [Suspect]
     Indication: GLIOMA
     Dosage: 145 MG; QD; PO
     Route: 048
     Dates: start: 20100222, end: 20100331
  2. KEPPRA [Suspect]
     Indication: EPILEPSY
     Dosage: 750 MG; BID; PO
     Route: 048
     Dates: start: 20091222, end: 20100413
  3. VALACYCLOVIR [Suspect]
     Indication: HERPES VIRUS INFECTION
     Dosage: 1000 MG; BID; PO
     Route: 048
     Dates: start: 20100317, end: 20100323
  4. URBANYL (CLOBAZAM) [Suspect]
     Indication: PARAESTHESIA
     Dosage: 10 MG; QD; PO
     Route: 048
     Dates: start: 20100317, end: 20100326
  5. NEXIUM [Concomitant]
  6. CORTANCYL [Concomitant]

REACTIONS (8)
  - CHOLANGITIS [None]
  - CONVULSION [None]
  - CYTOLYTIC HEPATITIS [None]
  - GLIOBLASTOMA [None]
  - HEPATITIS CHOLESTATIC [None]
  - JAUNDICE [None]
  - NEOPLASM RECURRENCE [None]
  - OCULAR ICTERUS [None]
